FAERS Safety Report 7085870-3 (Version None)
Quarter: 2010Q4

REPORT INFORMATION
  Report Type: 
  Country: None (occurrence: None)
  Receive Date: 20101105
  Receipt Date: 20101025
  Transmission Date: 20110411
  Serious: Yes (Other)
  Sender: FDA-Public Use
  Company Number: CA-JNJFOC-20101007943

PATIENT
  Sex: Male
  Weight: 99 kg

DRUGS (1)
  1. INFLIXIMAB, RECOMBINANT [Suspect]
     Indication: CROHN'S DISEASE

REACTIONS (2)
  - DRUG INEFFECTIVE [None]
  - RECTAL HAEMORRHAGE [None]
